FAERS Safety Report 13958837 (Version 1)
Quarter: 2017Q3

REPORT INFORMATION
  Report Type: Spontaneous
  Country: CA (occurrence: CA)
  Receive Date: 20170911
  Receipt Date: 20170911
  Transmission Date: 20171128
  Serious: Yes (Hospitalization, Other)
  Sender: FDA-Public Use
  Company Number: CA-MYLANLABS-2017M1054963

PATIENT
  Age: 79 Year
  Sex: Male

DRUGS (7)
  1. AMIODARONE MYLAN [Suspect]
     Active Substance: AMIODARONE
     Indication: PRODUCT USED FOR UNKNOWN INDICATION
     Dosage: 200.0 MG, QD
     Route: 048
  2. ASA [Concomitant]
     Active Substance: ASPIRIN
     Indication: PRODUCT USED FOR UNKNOWN INDICATION
     Dosage: UNK
  3. VALACYCLOVIR [Concomitant]
     Active Substance: VALACYCLOVIR HYDROCHLORIDE
     Indication: PRODUCT USED FOR UNKNOWN INDICATION
     Dosage: UNK
  4. HYDROMORPHONE [Concomitant]
     Active Substance: HYDROMORPHONE
     Indication: PRODUCT USED FOR UNKNOWN INDICATION
     Dosage: UNK
  5. SPIRONOLACTONE. [Concomitant]
     Active Substance: SPIRONOLACTONE
     Indication: PRODUCT USED FOR UNKNOWN INDICATION
     Dosage: UNK
  6. ZAROXOLYN [Concomitant]
     Active Substance: METOLAZONE
     Indication: PRODUCT USED FOR UNKNOWN INDICATION
     Dosage: UNK
  7. FUROSEMIDE. [Concomitant]
     Active Substance: FUROSEMIDE
     Indication: PRODUCT USED FOR UNKNOWN INDICATION
     Dosage: UNK

REACTIONS (16)
  - Pleural effusion [Recovering/Resolving]
  - Condition aggravated [Recovering/Resolving]
  - Cough [Recovering/Resolving]
  - Rales [Recovering/Resolving]
  - Sputum retention [Recovering/Resolving]
  - Thoracic cavity drainage [Recovering/Resolving]
  - Fluid overload [Recovering/Resolving]
  - Oedema peripheral [Recovering/Resolving]
  - Ascites [Recovering/Resolving]
  - Respiratory symptom [Recovering/Resolving]
  - Breath sounds abnormal [Recovering/Resolving]
  - Chest X-ray abnormal [Recovering/Resolving]
  - Lung consolidation [Recovering/Resolving]
  - Sputum discoloured [Recovering/Resolving]
  - Sputum abnormal [Recovering/Resolving]
  - Pulmonary oedema [Recovering/Resolving]
